FAERS Safety Report 10075989 (Version 1)
Quarter: 2014Q2

REPORT INFORMATION
  Report Type: Report from Study
  Country: US (occurrence: US)
  Receive Date: 20140414
  Receipt Date: 20140414
  Transmission Date: 20141212
  Serious: Yes (Hospitalization)
  Sender: FDA-Public Use
  Company Number: US-ROCHE-1376993

PATIENT
  Age: 54 Year
  Sex: Female

DRUGS (6)
  1. ZELBORAF [Suspect]
     Indication: MALIGNANT MELANOMA
     Route: 048
     Dates: start: 201304
  2. MORPHINE [Concomitant]
  3. OXYCODONE [Concomitant]
  4. BUSPIRONE [Concomitant]
  5. CELEXA (UNITED STATES) [Concomitant]
  6. MIRALAX [Concomitant]

REACTIONS (9)
  - Malaise [Recovered/Resolved]
  - Weight decreased [Unknown]
  - Dysgeusia [Recovered/Resolved]
  - Rash [Unknown]
  - Dry skin [Not Recovered/Not Resolved]
  - Photosensitivity reaction [Unknown]
  - Sunburn [Unknown]
  - Constipation [Not Recovered/Not Resolved]
  - Drug interaction [Unknown]
